FAERS Safety Report 8958521 (Version 5)
Quarter: 2013Q1

REPORT INFORMATION
  Report Type: Spontaneous
  Country: IE (occurrence: None)
  Receive Date: 20121203
  Receipt Date: 20130305
  Transmission Date: 20140127
  Serious: Yes (Other)
  Sender: FDA-Public Use
  Company Number: 2012-7875

PATIENT
  Sex: Female

DRUGS (4)
  1. AZZALURE (BOTULINUM TOXIN TYPE A) (BOTULINUM TOXIN TYPE A) [Suspect]
     Indication: SKIN COSMETIC PROCEDURE
     Dosage: 125 UNITS, 1 IN 1 CYCLE(S) INTRADERMAL
     Route: 023
     Dates: start: 20121109, end: 20121109
  2. AZZALURE (BOTULINUM TOXIN TYPE A) (BOTULINUM TOXIN TYPE A) [Suspect]
     Indication: SKIN WRINKLING
     Dosage: 125 UNITS, 1 IN 1 CYCLE(S) INTRADERMAL
     Route: 023
     Dates: start: 20121109, end: 20121109
  3. AZZALURE (BOTULINUM TOXIN TYPE A) (BOTULINUM TOXIN TYPE A) [Suspect]
     Dosage: 125 UNITS, 1 IN 1 CYCLE(S) INTRADERMAL
     Route: 023
     Dates: start: 20121109, end: 20121109
  4. AZZALURE (BOTULINUM TOXIN TYPE A) (BOTULINUM TOXIN TYPE A) [Suspect]
     Dosage: 125 UNITS, 1 IN 1 CYCLE(S) INTRADERMAL
     Route: 023
     Dates: start: 20121109, end: 20121109

REACTIONS (2)
  - Tympanic membrane disorder [None]
  - Deafness [None]
